FAERS Safety Report 14689533 (Version 1)
Quarter: 2018Q1

REPORT INFORMATION
  Report Type: Spontaneous
  Country: ZA (occurrence: ZA)
  Receive Date: 20180328
  Receipt Date: 20180328
  Transmission Date: 20180509
  Serious: Yes (Hospitalization)
  Sender: FDA-Public Use
  Company Number: ZA-PFIZER INC-2018125130

PATIENT
  Age: 73 Year
  Sex: Female

DRUGS (14)
  1. WARFARIN [Suspect]
     Active Substance: WARFARIN
     Dosage: 5 MG, UNK
  2. CARDICOR [Suspect]
     Active Substance: BISOPROLOL
     Dosage: 2.5 MG, UNK
  3. DEGRANOL [Suspect]
     Active Substance: CARBAMAZEPINE
     Dosage: 200 MG, UNK
  4. XEFO [Suspect]
     Active Substance: LORNOXICAM
     Dosage: 8 MG, UNK
  5. ARYCOR [Suspect]
     Active Substance: AMIODARONE HYDROCHLORIDE
     Dosage: 200 MG, UNK
  6. EPITEC [Suspect]
     Active Substance: LAMOTRIGINE
     Dosage: 25 MG, UNK
  7. SLOW MAG /01486809/ [Suspect]
     Active Substance: MAGNESIUM
     Dosage: 450 MG, UNK
  8. TRAMAZAC CO [Suspect]
     Active Substance: ACETAMINOPHEN\TRAMADOL
     Dosage: 37.5/325  MG, UNK
  9. PURESIS [Suspect]
     Active Substance: FUROSEMIDE
     Dosage: 40 MG, UNK
  10. TOPZOLE [Suspect]
     Active Substance: PANTOPRAZOLE SODIUM
     Dosage: 40 MG, UNK
  11. ELTROXIN [Suspect]
     Active Substance: LEVOTHYROXINE
     Dosage: 150 UG, UNK
  12. LASIX [Suspect]
     Active Substance: FUROSEMIDE
     Dosage: 20 MG, UNK
  13. PLENISH-K [Suspect]
     Active Substance: POTASSIUM CHLORIDE
     Dosage: 600 MG, UNK
  14. ALDACTONE [Suspect]
     Active Substance: SPIRONOLACTONE
     Dosage: 25 MG, UNK

REACTIONS (1)
  - Patella fracture [Unknown]
